FAERS Safety Report 12372585 (Version 2)
Quarter: 2016Q2

REPORT INFORMATION
  Report Type: Spontaneous
  Country: ES (occurrence: ES)
  Receive Date: 20160516
  Receipt Date: 20160607
  Transmission Date: 20160815
  Serious: Yes (Life-Threatening)
  Sender: FDA-Public Use
  Company Number: ES-PFIZER INC-2016248609

PATIENT
  Age: 68 Year
  Sex: Male

DRUGS (10)
  1. INVANZ [Interacting]
     Active Substance: ERTAPENEM SODIUM
     Indication: INFECTED SKIN ULCER
     Dosage: 1G/24HRS
     Route: 042
     Dates: start: 20160216, end: 20160222
  2. CHLORTALIDONE [Interacting]
     Active Substance: CHLORTHALIDONE
     Dosage: 25 MG/12 HRS
     Route: 048
     Dates: start: 20160216, end: 20160219
  3. ADIRO [Interacting]
     Active Substance: ASPIRIN
     Dosage: 100 MG/24 HRS
     Route: 048
     Dates: start: 20150905, end: 20160223
  4. FRAGMIN [Suspect]
     Active Substance: DALTEPARIN SODIUM
     Dosage: 2500 IU/24 HRS
     Route: 058
     Dates: start: 20150905
  5. ATARAX [Interacting]
     Active Substance: HYDROXYZINE\HYDROXYZINE HYDROCHLORIDE
     Dosage: 25 MG/24 HRS
     Route: 048
     Dates: start: 20160216
  6. OMEPRAZOL [Interacting]
     Active Substance: OMEPRAZOLE
     Dosage: 20 MG/24HRS
     Route: 048
     Dates: start: 20160216
  7. SIMVASTATIN. [Interacting]
     Active Substance: SIMVASTATIN
     Dosage: 20 MG/24 HRS
     Route: 048
     Dates: start: 20160216
  8. BISOPROLOL [Interacting]
     Active Substance: BISOPROLOL
     Dosage: 2.5 MG/24 HRS
     Route: 048
     Dates: start: 20160216
  9. FUROSEMIDE. [Interacting]
     Active Substance: FUROSEMIDE
     Dosage: 40 MG/24 HRS
     Route: 048
     Dates: start: 20160216
  10. METFORMIN [Interacting]
     Active Substance: METFORMIN HYDROCHLORIDE
     Dosage: 850 MG/24 HRS
     Route: 048
     Dates: start: 20151002, end: 20160219

REACTIONS (2)
  - Hepatitis toxic [Recovered/Resolved]
  - Drug interaction [Recovered/Resolved]

NARRATIVE: CASE EVENT DATE: 20160222
